FAERS Safety Report 5880400-3 (Version None)
Quarter: 2008Q3

REPORT INFORMATION
  Report Type: 
  Country: None (occurrence: None)
  Receive Date: 20080912
  Receipt Date: 20080829
  Transmission Date: 20090109
  Serious: No
  Sender: FDA-Public Use
  Company Number: PR-ABBOTT-08P-131-0474302-00

PATIENT
  Sex: Female
  Weight: 52.664 kg

DRUGS (6)
  1. HUMIRA [Suspect]
     Indication: COLITIS
     Route: 058
     Dates: start: 20080501
  2. HUMIRA [Suspect]
     Indication: CROHN'S DISEASE
  3. LEVOTHROID [Concomitant]
     Indication: THYROID NEOPLASM
     Route: 048
  4. MESALAMINE [Concomitant]
     Indication: COLITIS
     Route: 048
  5. MESALAMINE [Concomitant]
     Indication: CROHN'S DISEASE
  6. CYANOCOBALAMIN [Concomitant]
     Indication: VITAMIN SUPPLEMENTATION
     Route: 048

REACTIONS (1)
  - ALOPECIA [None]
